FAERS Safety Report 19093149 (Version 1)
Quarter: 2021Q2

REPORT INFORMATION
  Report Type: Spontaneous
  Country: GB (occurrence: GB)
  Receive Date: 20210405
  Receipt Date: 20210405
  Transmission Date: 20210717
  Serious: Yes (Other)
  Sender: FDA-Public Use
  Company Number: GB-MYLANLABS-2021M1019667

PATIENT
  Age: 52 Year
  Sex: Female
  Weight: 63.5 kg

DRUGS (2)
  1. NUROFEN EXPRESS                    /00109202/ [Concomitant]
     Active Substance: IBUPROFEN LYSINE
     Indication: ILL-DEFINED DISORDER
     Dosage: UNK
  2. GLYCERYL TRINITRATE [Suspect]
     Active Substance: NITROGLYCERIN
     Indication: ILL-DEFINED DISORDER
     Dosage: UNK UNK, BID (2.5 CM TWICE A DAY EVERY 12 HOURS )
     Route: 061
     Dates: start: 20210329

REACTIONS (4)
  - Headache [Recovered/Resolved with Sequelae]
  - Visual impairment [Recovered/Resolved]
  - Nausea [Recovering/Resolving]
  - Dizziness [Recovered/Resolved with Sequelae]

NARRATIVE: CASE EVENT DATE: 20210329
